FAERS Safety Report 9146551 (Version 1)
Quarter: 2013Q1

REPORT INFORMATION
  Report Type: Spontaneous
  Country: FR (occurrence: FR)
  Receive Date: 20130307
  Receipt Date: 20130307
  Transmission Date: 20140127
  Serious: Yes (Hospitalization, Disabling)
  Sender: FDA-Public Use
  Company Number: FR-ASTRAZENECA-2013SE13069

PATIENT
  Age: 72 Year
  Sex: Female

DRUGS (1)
  1. FASLODEX [Suspect]
     Indication: BREAST CANCER METASTATIC
     Route: 030
     Dates: start: 201103, end: 20121121

REACTIONS (4)
  - Injection site necrosis [Recovered/Resolved]
  - Malabsorption from injection site [Recovering/Resolving]
  - Subcutaneous abscess [Recovered/Resolved]
  - Injection site pain [Recovering/Resolving]
